FAERS Safety Report 9241682 (Version 1)
Quarter: 2013Q2

REPORT INFORMATION
  Report Type: Report from Study
  Country: US (occurrence: US)
  Receive Date: 20130419
  Receipt Date: 20130419
  Transmission Date: 20140414
  Serious: Yes (Hospitalization)
  Sender: FDA-Public Use
  Company Number: US-CELGENEUS-163-C4047-12072539

PATIENT
  Age: 44 Year
  Sex: Male
  Weight: 100 kg

DRUGS (19)
  1. CC-4047 [Suspect]
     Indication: PLASMA CELL MYELOMA
     Route: 048
     Dates: start: 20111208
  2. CC-4047 [Suspect]
     Route: 048
     Dates: start: 20120628, end: 20120703
  3. CARFILZOMIB [Suspect]
     Indication: PLASMA CELL MYELOMA
     Route: 065
     Dates: start: 20111208
  4. CARFILZOMIB [Suspect]
     Route: 041
     Dates: start: 20120628, end: 20120629
  5. MOTRIN [Concomitant]
     Indication: PRODUCT USED FOR UNKNOWN INDICATION
     Route: 065
  6. COUMADIN [Concomitant]
     Indication: DEEP VEIN THROMBOSIS
     Route: 065
     Dates: start: 20101124
  7. COUMADIN [Concomitant]
     Indication: ANTICOAGULANT THERAPY
  8. ACYCLOVIR [Concomitant]
     Indication: ANTIVIRAL PROPHYLAXIS
     Route: 065
     Dates: start: 20111208
  9. DILAUDID [Concomitant]
     Indication: PAIN
     Route: 065
     Dates: start: 20080923
  10. ATIVAN [Concomitant]
     Indication: ANXIETY
     Route: 065
     Dates: start: 20111209
  11. SEVELAMER CARBONATE [Concomitant]
     Indication: HYPERPHOSPHATAEMIA
     Route: 065
     Dates: start: 20120731, end: 20120911
  12. VALACYCLOVIR [Concomitant]
     Indication: ANTIVIRAL PROPHYLAXIS
     Route: 065
     Dates: start: 20120709
  13. COLACE [Concomitant]
     Indication: CONSTIPATION
     Route: 065
     Dates: start: 20120725
  14. LASIX [Concomitant]
     Indication: RENAL FAILURE ACUTE
     Route: 065
     Dates: start: 20120731, end: 20120911
  15. LASIX [Concomitant]
     Indication: FLUID RETENTION
     Route: 065
     Dates: start: 20120726, end: 20120911
  16. MIRALAX [Concomitant]
     Indication: CONSTIPATION
     Route: 065
     Dates: start: 20120726
  17. ONDANSETRON [Concomitant]
     Indication: NAUSEA
     Route: 065
     Dates: start: 20120726
  18. ONDANSETRON [Concomitant]
     Indication: VOMITING
  19. SENNA [Concomitant]
     Indication: CONSTIPATION
     Route: 065
     Dates: start: 20120726

REACTIONS (2)
  - Thrombotic microangiopathy [Recovered/Resolved]
  - Pneumonia [Recovered/Resolved]
